FAERS Safety Report 6061566-1 (Version None)
Quarter: 2009Q1

REPORT INFORMATION
  Report Type: 
  Country: None (occurrence: None)
  Receive Date: 20090202
  Receipt Date: 20090121
  Transmission Date: 20090719
  Serious: Yes (Life-Threatening, Hospitalization)
  Sender: FDA-Public Use
  Company Number: FR-PFIZER INC-2009160424

PATIENT

DRUGS (5)
  1. SOLU-MEDROL [Suspect]
     Route: 042
     Dates: start: 20080510, end: 20080610
  2. TOCILIZUMAB [Suspect]
     Dosage: 7MG/KG ONCE PER 5 WEEKS
     Route: 042
     Dates: start: 20080711, end: 20081030
  3. ORENCIA [Suspect]
     Dosage: 500 MG, EVERY 2 WEEKS
     Route: 042
     Dates: start: 20080510, end: 20080710
  4. KINERET [Suspect]
     Route: 058
     Dates: start: 20080301, end: 20080509
  5. IMUREL [Suspect]
     Route: 048
     Dates: start: 20080501, end: 20080801

REACTIONS (3)
  - ARTHRITIS [None]
  - PSOAS ABSCESS [None]
  - SACROILIITIS [None]
